FAERS Safety Report 9668734 (Version 2)
Quarter: 2013Q4

REPORT INFORMATION
  Report Type: Report from Study
  Country: US (occurrence: US)
  Receive Date: 20131105
  Receipt Date: 20131127
  Transmission Date: 20140711
  Serious: Yes (Other)
  Sender: FDA-Public Use
  Company Number: US-MPIJNJ-2013MPI000757

PATIENT
  Age: 59 Year
  Sex: Male

DRUGS (5)
  1. VELCADE [Suspect]
     Indication: ACUTE MYELOID LEUKAEMIA
     Dosage: 2.25 MG, ON DAS 8 AND 15
     Route: 058
  2. MIDOSTAURIN [Suspect]
     Indication: ACUTE MYELOID LEUKAEMIA
     Dosage: 50 MG, BID
     Route: 048
  3. MITOXANTRONE HYDROCHLORIDE [Suspect]
     Indication: ACUTE MYELOID LEUKAEMIA
     Dosage: 10 MG, ON DAYS 1-6
     Route: 042
     Dates: start: 20131008, end: 20131013
  4. CYTARABINE [Suspect]
     Indication: ACUTE MYELOID LEUKAEMIA
     Dosage: 1.660 MG, ON DAYS 1-6
     Route: 042
     Dates: start: 20131008, end: 20131013
  5. ETOPOSIDE [Suspect]
     Indication: ACUTE MYELOID LEUKAEMIA
     Dosage: 132 MG, ON DAYS 1-6
     Route: 042
     Dates: start: 20131008, end: 20131013

REACTIONS (4)
  - Colitis [Recovered/Resolved]
  - Hypophosphataemia [Recovering/Resolving]
  - Hypoxia [Recovered/Resolved]
  - Diarrhoea [Recovered/Resolved]
